FAERS Safety Report 5150747-7 (Version None)
Quarter: 2006Q4

REPORT INFORMATION
  Report Type: 
  Country: None (occurrence: None)
  Receive Date: 20061108
  Receipt Date: 20061030
  Transmission Date: 20070319
  Serious: Yes (Other)
  Sender: FDA-Public Use
  Company Number: 2006129510

PATIENT
  Age: 66 Year
  Sex: Female

DRUGS (3)
  1. LIPITOR [Suspect]
     Indication: DYSLIPIDAEMIA
     Dosage: 40 MG (20 MG, 2 IN 1 D),ORAL
     Route: 048
     Dates: start: 20040601
  2. MICARDIS [Concomitant]
  3. CALCITE D (CALCIUM CARBONATE, ERGOCALCIFEROL) [Concomitant]

REACTIONS (6)
  - CHILLS [None]
  - DRY EYE [None]
  - PHOTOPHOBIA [None]
  - PYREXIA [None]
  - VISION BLURRED [None]
  - VISUAL DISTURBANCE [None]
